FAERS Safety Report 7959384-X (Version None)
Quarter: 2011Q4

REPORT INFORMATION
  Report Type: 
  Country: None (occurrence: None)
  Receive Date: 20111206
  Receipt Date: 20111201
  Transmission Date: 20120403
  Serious: No
  Sender: FDA-Public Use
  Company Number: CA-PFIZER INC-2011274754

PATIENT
  Age: 55 Year
  Sex: Female

DRUGS (5)
  1. MEPRON [Concomitant]
     Indication: LYME DISEASE
     Dosage: 1125 MG, 2X/DAY
     Route: 048
  2. DILANTIN [Suspect]
     Indication: EPILEPSY
     Dosage: 100 MG, 2X/DAY
     Route: 048
     Dates: end: 20111101
  3. AMOXIL [Concomitant]
     Indication: LYME DISEASE
     Dosage: 1500 MG, 2X/DAY
     Route: 048
  4. AZITHROMYCIN [Concomitant]
     Indication: LYME DISEASE
     Dosage: 250 MG, 2X/DAY
     Route: 048
     Dates: start: 20111105
  5. NEXIUM [Concomitant]
     Indication: GASTROOESOPHAGEAL REFLUX DISEASE
     Dosage: 40 MG, 1X/DAY
     Route: 048
     Dates: start: 20111027

REACTIONS (5)
  - MUSCULAR WEAKNESS [None]
  - COORDINATION ABNORMAL [None]
  - MUSCLE SPASMS [None]
  - HYPERAESTHESIA [None]
  - PAROSMIA [None]
